FAERS Safety Report 7342517-6 (Version None)
Quarter: 2011Q1

REPORT INFORMATION
  Report Type: 
  Country: None (occurrence: None)
  Receive Date: 20110310
  Receipt Date: 20110307
  Transmission Date: 20110831
  Serious: Yes (Other)
  Sender: FDA-Public Use
  Company Number: US-PFIZER INC-2010160570

PATIENT
  Sex: Male

DRUGS (4)
  1. CHANTIX [Suspect]
     Indication: SMOKING CESSATION THERAPY
     Dosage: UNK
     Dates: start: 20080101, end: 20080701
  2. PREDNISONE [Concomitant]
     Indication: INFLAMMATION
     Dosage: AS NEEDED, UNK
     Dates: start: 20060101
  3. SKELAXIN [Concomitant]
     Indication: BACK PAIN
     Dosage: UNK
     Dates: start: 20060101, end: 20090101
  4. NEXIUM [Concomitant]
     Indication: GASTROOESOPHAGEAL REFLUX DISEASE
     Dosage: UNK
     Dates: start: 20030101, end: 20090101

REACTIONS (11)
  - VISION BLURRED [None]
  - LOSS OF CONSCIOUSNESS [None]
  - PANIC ATTACK [None]
  - MYOCARDIAL INFARCTION [None]
  - MENTAL DISORDER [None]
  - HYPOAESTHESIA FACIAL [None]
  - TINNITUS [None]
  - RASH [None]
  - SUICIDAL IDEATION [None]
  - ANXIETY [None]
  - DEPRESSION [None]
